FAERS Safety Report 10766811 (Version 1)
Quarter: 2015Q1

REPORT INFORMATION
  Report Type: Spontaneous
  Country: US (occurrence: US)
  Receive Date: 20150205
  Receipt Date: 20150205
  Transmission Date: 20150721
  Serious: Yes (Hospitalization)
  Sender: FDA-Public Use
  Company Number: US-GILEAD-2015-0135031

PATIENT
  Age: 74 Year
  Sex: Female

DRUGS (20)
  1. ALBUTEROL                          /00139501/ [Concomitant]
     Active Substance: ALBUTEROL
  2. WARFARIN [Concomitant]
     Active Substance: WARFARIN
  3. MAGNESIUM [Concomitant]
     Active Substance: MAGNESIUM
  4. LYSINE [Concomitant]
     Active Substance: LYSINE
  5. QUININE [Concomitant]
     Active Substance: QUININE
  6. SILDENAFIL. [Concomitant]
     Active Substance: SILDENAFIL
  7. HYDROCODONE [Concomitant]
     Active Substance: HYDROCODONE
  8. POTASSIUM [Concomitant]
     Active Substance: POTASSIUM
  9. FUROSEMIDE. [Concomitant]
     Active Substance: FUROSEMIDE
  10. MULTI VITAMIN [Concomitant]
     Active Substance: VITAMINS
  11. LYRICA [Concomitant]
     Active Substance: PREGABALIN
  12. VITAMIN D [Concomitant]
     Active Substance: CHOLECALCIFEROL
  13. UBIQUINOL [Concomitant]
  14. QVAR [Concomitant]
     Active Substance: BECLOMETHASONE DIPROPIONATE
  15. LETAIRIS [Suspect]
     Active Substance: AMBRISENTAN
     Indication: COR PULMONALE CHRONIC
     Dosage: 5 MG, QD
     Route: 065
     Dates: start: 20140917
  16. GABAPENTIN. [Concomitant]
     Active Substance: GABAPENTIN
  17. VITAMIN K2                         /00357701/ [Concomitant]
  18. FLONASE [Concomitant]
     Active Substance: FLUTICASONE PROPIONATE
  19. CALCIUM [Concomitant]
     Active Substance: CALCIUM
  20. OMEGA-3 FATTY ACIDS [Concomitant]
     Active Substance: OMEGA-3 FATTY ACIDS

REACTIONS (2)
  - Cough [Recovered/Resolved]
  - Dyspnoea [Recovered/Resolved]

NARRATIVE: CASE EVENT DATE: 20150123
